FAERS Safety Report 9575873 (Version 2)
Quarter: 2013Q4

REPORT INFORMATION
  Report Type: Spontaneous
  Country: US (occurrence: US)
  Receive Date: 20131001
  Receipt Date: 20131001
  Transmission Date: 20140711
  Serious: No
  Sender: FDA-Public Use
  Company Number: US-AMGEN-USASP2012048337

PATIENT
  Age: 84 Year
  Sex: Male
  Weight: 78.01 kg

DRUGS (7)
  1. PROCRIT [Suspect]
     Indication: ANAEMIA OF CHRONIC DISEASE
     Dosage: 40000 UNK, PRN
     Route: 058
     Dates: start: 20120101
  2. IPRATROPIUM BROMIDE [Concomitant]
     Indication: RHINORRHOEA
     Dosage: UNK
     Route: 045
  3. PLAVIX [Concomitant]
     Indication: STENT PLACEMENT
     Dosage: .5 UNK, QD
     Route: 048
     Dates: start: 2002
  4. MAGNESIUM [Concomitant]
     Indication: BLOOD MAGNESIUM DECREASED
     Dosage: 400 MG, QD
     Route: 048
     Dates: start: 2011
  5. AMLODIPINE [Concomitant]
     Indication: CARDIAC DISORDER
     Dosage: 10 MG, QD
     Route: 048
     Dates: start: 2009
  6. ATACAND [Concomitant]
     Indication: CARDIAC DISORDER
     Dosage: 4 MG, QD
     Route: 048
     Dates: start: 2007
  7. CRESTOR [Concomitant]
     Indication: BLOOD CHOLESTEROL
     Dosage: 5 MG, QOD
     Route: 048
     Dates: start: 2007

REACTIONS (4)
  - Blood thyroid stimulating hormone increased [Unknown]
  - Haemoglobin decreased [Recovering/Resolving]
  - Fatigue [Not Recovered/Not Resolved]
  - Asthenia [Not Recovered/Not Resolved]
